FAERS Safety Report 7819877 (Version 2)
Quarter: 2013Q1

REPORT INFORMATION
  Report Type: Spontaneous
  Country: IT (occurrence: IT)
  Receive Date: 20110221
  Receipt Date: 20130212
  Transmission Date: 20140127
  Serious: Yes (Other)
  Sender: FDA-Public Use
  Company Number: IT-RANBAXY-2011R1-41817

PATIENT
  Age: 59 Year
  Sex: Female

DRUGS (1)
  1. PHENOBARBITAL [Suspect]
     Indication: CONVULSION
     Dosage: 100 MG/DAY
     Route: 065

REACTIONS (1)
  - Sjogren^s syndrome [Recovered/Resolved]
